FAERS Safety Report 9732992 (Version 1)
Quarter: 2013Q4

REPORT INFORMATION
  Report Type: Spontaneous
  Country: US (occurrence: US)
  Receive Date: 20131204
  Receipt Date: 20131204
  Transmission Date: 20140711
  Serious: Yes (Hospitalization)
  Sender: FDA-Public Use
  Company Number: US-GILEAD-2009-0020969

PATIENT
  Age: 78 Year
  Sex: Female
  Weight: 44.45 kg

DRUGS (6)
  1. LETAIRIS [Suspect]
     Indication: PULMONARY ARTERIAL HYPERTENSION
     Route: 048
     Dates: start: 20090204, end: 20090222
  2. COUMADIN [Concomitant]
  3. LASIX [Concomitant]
  4. ALDACTONE [Concomitant]
  5. TOPROL XL [Concomitant]
  6. FOSAMAX [Concomitant]

REACTIONS (1)
  - Oedema [Recovering/Resolving]
